FAERS Safety Report 5663616-0 (Version None)
Quarter: 2008Q1

REPORT INFORMATION
  Report Type: 
  Country: None (occurrence: None)
  Receive Date: 20080313
  Receipt Date: 20080306
  Transmission Date: 20080703
  Serious: Yes (Hospitalization)
  Sender: FDA-Public Use
  Company Number: BE-ABBOTT-08P-013-0441316-00

PATIENT
  Age: 25 Year
  Sex: Female

DRUGS (6)
  1. HUMIRA [Suspect]
     Indication: CROHN'S DISEASE
     Dates: start: 20080124, end: 20080124
  2. INFLIXIMAB [Suspect]
     Indication: CROHN'S DISEASE
     Dates: start: 20061101
  3. INFLIXIMAB [Suspect]
     Dates: start: 20070801, end: 20080101
  4. METHYLPREDNISOLONE [Concomitant]
     Indication: CROHN'S DISEASE
  5. AZATHIOPRINE [Concomitant]
     Indication: CROHN'S DISEASE
  6. OMEPRAZOLE [Concomitant]
     Indication: STOMACH DISCOMFORT

REACTIONS (3)
  - DRUG RESISTANCE [None]
  - ILEAL STENOSIS [None]
  - INTESTINAL DILATATION [None]
